FAERS Safety Report 23472715 (Version 1)
Quarter: 2024Q1

REPORT INFORMATION
  Report Type: Report from Study
  Country: FR (occurrence: FR)
  Receive Date: 20240202
  Receipt Date: 20240202
  Transmission Date: 20240410
  Serious: Yes (Hospitalization)
  Sender: FDA-Public Use
  Company Number: FR-ABBVIE-22K-056-4445848-00

PATIENT
  Age: 31 Year
  Sex: Male
  Weight: 73 kg

DRUGS (7)
  1. ADALIMUMAB [Suspect]
     Active Substance: ADALIMUMAB\ISOPROPYL ALCOHOL
     Indication: Colitis ulcerative
     Dosage: TIME INTERVAL: 1 TOTAL: DAY 1
     Route: 058
     Dates: start: 20180420, end: 20180420
  2. ADALIMUMAB [Suspect]
     Active Substance: ADALIMUMAB\ISOPROPYL ALCOHOL
     Dosage: ON DAY 14
     Route: 058
     Dates: start: 20180503, end: 20180503
  3. ADALIMUMAB [Suspect]
     Active Substance: ADALIMUMAB\ISOPROPYL ALCOHOL
     Route: 058
     Dates: start: 2018, end: 2018
  4. ADALIMUMAB [Suspect]
     Active Substance: ADALIMUMAB\ISOPROPYL ALCOHOL
     Route: 058
     Dates: start: 2018, end: 2018
  5. ADALIMUMAB [Suspect]
     Active Substance: ADALIMUMAB\ISOPROPYL ALCOHOL
     Route: 058
     Dates: end: 202201
  6. METHOTREXATE [Concomitant]
     Active Substance: METHOTREXATE
     Indication: Colitis ulcerative
     Route: 030
     Dates: start: 201711, end: 20190311
  7. LOPERAMIDE [Concomitant]
     Active Substance: LOPERAMIDE
     Indication: Gastrointestinal stoma complication
     Dosage: 9 TABLET

REACTIONS (8)
  - Colectomy total [Recovered/Resolved with Sequelae]
  - Pyoderma [Recovering/Resolving]
  - Ileostomy [Unknown]
  - Proctocolectomy [Recovering/Resolving]
  - Colon dysplasia [Unknown]
  - Frequent bowel movements [Unknown]
  - Multisystem inflammatory syndrome [Unknown]
  - Rectal dysplasia [Unknown]

NARRATIVE: CASE EVENT DATE: 20220101
